FAERS Safety Report 8269099 (Version 3)
Quarter: 2013Q3

REPORT INFORMATION
  Report Type: Report from Study
  Country: AU (occurrence: AU)
  Receive Date: 20111130
  Receipt Date: 20130819
  Transmission Date: 20140515
  Serious: Yes (Life-Threatening, Hospitalization)
  Sender: FDA-Public Use
  Company Number: AU-ALEXION-A201101782

PATIENT
  Age: 36 Year
  Sex: Female

DRUGS (13)
  1. ECULIZUMAB [Suspect]
     Indication: HAEMOLYTIC URAEMIC SYNDROME
     Dosage: 1200 MG, Q2W
     Route: 042
     Dates: start: 20111104
  2. LERCANIDIPINE [Concomitant]
     Dosage: 10 MG, QD
  3. FUROSEMIDE [Concomitant]
     Dosage: 250 MG, BID
  4. CALTRATE [Concomitant]
     Dosage: 1, TID
  5. FOLIC ACID [Concomitant]
     Indication: SUPPLEMENTATION THERAPY
     Dosage: 5 MG, NOCTE
  6. VITAMIN D [Concomitant]
     Dosage: 25 UG, QD
  7. METOPROLOL [Concomitant]
     Indication: HYPERTENSION
     Dosage: 25 MG, BD
  8. OMEPRAZOLE [Concomitant]
     Indication: GASTROOESOPHAGEAL REFLUX DISEASE
     Dosage: 20 MG, MANE
  9. SEVELAMER [Concomitant]
     Indication: HYPERPHOSPHATAEMIA
     Dosage: 1600 MG, TDS
  10. VITAMIN B [Concomitant]
     Indication: SUPPLEMENTATION THERAPY
     Dosage: 1 TAB, NOCTE
  11. ARANESP [Concomitant]
     Indication: ANAEMIA
     Dosage: 60 MCG, QW
  12. IRON [Concomitant]
     Indication: IRON DEFICIENCY
     Dosage: 100 MG, FORTNIGHT
  13. CHOLECALCIFEROL [Concomitant]
     Indication: SUPPLEMENTATION THERAPY
     Dosage: 25 MCG, MANE

REACTIONS (2)
  - Cardiomyopathy [Recovering/Resolving]
  - Pulmonary embolism [Recovered/Resolved]
